FAERS Safety Report 8226772-6 (Version None)
Quarter: 2012Q1

REPORT INFORMATION
  Report Type: 
  Country: None (occurrence: None)
  Receive Date: 20120322
  Receipt Date: 20120315
  Transmission Date: 20120608
  Serious: Yes (Hospitalization, Other)
  Sender: FDA-Public Use
  Company Number: US-BAYER-2011-111990

PATIENT
  Age: 46 Year
  Sex: Female
  Weight: 111 kg

DRUGS (3)
  1. ATARAX [Concomitant]
     Dosage: 25 MG, BID, PRN
  2. YAZ [Suspect]
     Indication: ORAL CONTRACEPTION
     Dosage: UNK
     Dates: start: 20081101
  3. ULTRACET [Concomitant]
     Dosage: 1 DF, BID, PRN
     Route: 048

REACTIONS (3)
  - INJURY [None]
  - PAIN [None]
  - DEEP VEIN THROMBOSIS [None]
